FAERS Safety Report 5619517-7 (Version None)
Quarter: 2008Q1

REPORT INFORMATION
  Report Type: 
  Country: None (occurrence: None)
  Receive Date: 20080111
  Receipt Date: 20071115
  Transmission Date: 20080703
  Serious: Yes (Hospitalization)
  Sender: FDA-Public Use
  Company Number: 2007SP003873

PATIENT
  Age: 47 Year
  Sex: Female
  Weight: 108.8633 kg

DRUGS (14)
  1. XOPENEX HFA [Suspect]
     Indication: ASTHMA
     Dosage: 90 UG;1X;INHALATION
     Route: 055
     Dates: start: 20071113, end: 20071113
  2. XOPENEX HFA [Suspect]
     Indication: DYSPNOEA
     Dosage: 90 UG;1X;INHALATION
     Route: 055
     Dates: start: 20071113, end: 20071113
  3. XOPENEX HFA [Suspect]
     Indication: PNEUMONIA
     Dosage: 90 UG;1X;INHALATION
     Route: 055
     Dates: start: 20071113, end: 20071113
  4. BUDESONIDE W/FORMOTEROL [Concomitant]
  5. FURMARATE [Concomitant]
  6. SYNTHROID [Concomitant]
  7. MAGNESIUM OXIDE [Concomitant]
  8. ACETYLSALICYLIC ACID SRT [Concomitant]
  9. XANAX [Concomitant]
  10. VICODIN [Concomitant]
  11. TOPROL-XL [Concomitant]
  12. HYDROCHLOROTHIAZIDE [Concomitant]
  13. POTASSIUM CHLORIDE [Concomitant]
  14. ACIPHEX [Concomitant]

REACTIONS (3)
  - CHEST PAIN [None]
  - CHOLELITHIASIS [None]
  - TYPE I HYPERSENSITIVITY [None]
